FAERS Safety Report 13758079 (Version 1)
Quarter: 2017Q3

REPORT INFORMATION
  Report Type: Spontaneous
  Country: US (occurrence: US)
  Receive Date: 20170717
  Receipt Date: 20170717
  Transmission Date: 20171127
  Serious: No
  Sender: FDA-Public Use
  Company Number: US-GLAXOSMITHKLINE-US2017GSK108603

PATIENT
  Sex: Female

DRUGS (1)
  1. NICODERM CQ [Suspect]
     Active Substance: NICOTINE
     Indication: SMOKING CESSATION THERAPY
     Dosage: UNK, USED FOR 4-5 DAYS
     Dates: start: 20170627

REACTIONS (3)
  - Application site urticaria [Unknown]
  - Application site pain [Recovered/Resolved]
  - Dermatitis contact [Unknown]
